FAERS Safety Report 9054549 (Version 3)
Quarter: 2013Q1

REPORT INFORMATION
  Report Type: Report from Study
  Country: US (occurrence: US)
  Receive Date: 20130208
  Receipt Date: 20130304
  Transmission Date: 20140127
  Serious: Yes (Hospitalization)
  Sender: FDA-Public Use
  Company Number: US-JNJFOC-20130202927

PATIENT
  Age: 38 None
  Sex: Female
  Weight: 169.65 kg

DRUGS (2)
  1. STELARA [Suspect]
     Indication: PSORIASIS
     Route: 058
     Dates: start: 201111
  2. CORTICOSTEROIDS [Concomitant]

REACTIONS (1)
  - Cellulitis [Recovered/Resolved]
